FAERS Safety Report 10282907 (Version 2)
Quarter: 2014Q3

REPORT INFORMATION
  Report Type: Report from Study
  Country: US (occurrence: US)
  Receive Date: 20140708
  Receipt Date: 20140728
  Transmission Date: 20150326
  Serious: Yes (Hospitalization, Other)
  Sender: FDA-Public Use
  Company Number: US-BIOGENIDEC-2014BI065388

PATIENT
  Age: 41 Year
  Sex: Female

DRUGS (1)
  1. TYSABRI [Suspect]
     Active Substance: NATALIZUMAB
     Indication: MULTIPLE SCLEROSIS
     Route: 042
     Dates: start: 20080814, end: 20140410

REACTIONS (4)
  - Swelling face [Recovered/Resolved]
  - Thrombosis [Unknown]
  - Local swelling [Recovered/Resolved]
  - Vein collapse [Not Recovered/Not Resolved]

NARRATIVE: CASE EVENT DATE: 201405
